FAERS Safety Report 14751602 (Version 2)
Quarter: 2019Q2

REPORT INFORMATION
  Report Type: Spontaneous
  Country: US (occurrence: US)
  Receive Date: 20180412
  Receipt Date: 20190402
  Transmission Date: 20190711
  Serious: Yes (Other)
  Sender: FDA-Public Use
  Company Number: US-GLAXOSMITHKLINE-US2018GSK062697

PATIENT
  Sex: Male

DRUGS (6)
  1. PREVACID [Suspect]
     Active Substance: LANSOPRAZOLE
     Indication: PRODUCT USED FOR UNKNOWN INDICATION
     Dosage: 30 MG, QD
     Route: 065
  2. LANSOPRAZOLE. [Suspect]
     Active Substance: LANSOPRAZOLE
     Indication: PRODUCT USED FOR UNKNOWN INDICATION
     Dosage: 30 MG, QD
     Route: 065
  3. PANTOPRAZOLE [Suspect]
     Active Substance: PANTOPRAZOLE
     Indication: GASTROOESOPHAGEAL REFLUX DISEASE
     Dosage: 40 MG, BID
     Route: 048
  4. PANTOPRAZOLE [Suspect]
     Active Substance: PANTOPRAZOLE
     Indication: HYPERCHLORHYDRIA
     Dosage: 40 MG, QD
     Route: 048
  5. PREVACID [Suspect]
     Active Substance: LANSOPRAZOLE
     Indication: PRODUCT USED FOR UNKNOWN INDICATION
     Dosage: UNK
     Route: 065
  6. OMEPRAZOLE. [Suspect]
     Active Substance: OMEPRAZOLE
     Indication: PRODUCT USED FOR UNKNOWN INDICATION
     Dosage: 40 MG, BID
     Route: 065

REACTIONS (18)
  - Renal failure [Unknown]
  - Glomerulonephritis [Unknown]
  - Nephrosclerosis [Unknown]
  - Haematuria [Unknown]
  - Kidney enlargement [Unknown]
  - Acute kidney injury [Unknown]
  - Nephrogenic anaemia [Unknown]
  - Blood creatinine increased [Unknown]
  - Nephropathy [Unknown]
  - Kidney infection [Unknown]
  - Proteinuria [Unknown]
  - Renal impairment [Unknown]
  - Chronic kidney disease [Unknown]
  - Diabetic nephropathy [Unknown]
  - Nephrolithiasis [Unknown]
  - Renal injury [Unknown]
  - Tubulointerstitial nephritis [Unknown]
  - Blood urea increased [Unknown]
